FAERS Safety Report 9080293 (Version 1)
Quarter: 2013Q1

REPORT INFORMATION
  Report Type: Spontaneous
  Country: US (occurrence: US)
  Receive Date: 20130130
  Receipt Date: 20130130
  Transmission Date: 20140127
  Serious: No
  Sender: FDA-Public Use
  Company Number: US-BAYER-2013-008806

PATIENT
  Age: 63 Year
  Sex: Female
  Weight: 63 kg

DRUGS (2)
  1. ALEVE CAPLET/TABLET,MIDOL EXTENDED RELIEF CAPLET [Suspect]
     Dosage: 2 DF, BID
     Route: 048
     Dates: start: 20130108
  2. EFFEXOR [Concomitant]

REACTIONS (2)
  - Somnolence [Recovered/Resolved]
  - Overdose [Not Recovered/Not Resolved]
